FAERS Safety Report 8054433-5 (Version None)
Quarter: 2012Q1

REPORT INFORMATION
  Report Type: 
  Country: None (occurrence: None)
  Receive Date: 20120118
  Receipt Date: 20120116
  Transmission Date: 20120608
  Serious: Yes (Hospitalization, Other)
  Sender: FDA-Public Use
  Company Number: CA-ABBOTT-12P-028-0892362-00

PATIENT
  Sex: Female
  Weight: 68.1 kg

DRUGS (2)
  1. HUMIRA [Suspect]
     Route: 058
  2. HUMIRA [Suspect]
     Indication: CROHN'S DISEASE
     Route: 058
     Dates: start: 20100808

REACTIONS (5)
  - INTESTINAL PERFORATION [None]
  - INJECTION SITE PAIN [None]
  - DRUG INEFFECTIVE [None]
  - RENAL NEOPLASM [None]
  - APPENDICITIS PERFORATED [None]
